FAERS Safety Report 4492894-9 (Version None)
Quarter: 2004Q4

REPORT INFORMATION
  Report Type: 
  Country: None (occurrence: None)
  Receive Date: 20041104
  Receipt Date: 20041026
  Transmission Date: 20050328
  Serious: Yes (Other)
  Sender: FDA-Public Use
  Company Number: JP-MERCK-0410USA04202

PATIENT

DRUGS (1)
  1. COZAAR [Suspect]
     Route: 048

REACTIONS (1)
  - SHOCK [None]
